FAERS Safety Report 7918609-7 (Version None)
Quarter: 2011Q4

REPORT INFORMATION
  Report Type: 
  Country: None (occurrence: None)
  Receive Date: 20111116
  Receipt Date: 20111107
  Transmission Date: 20120403
  Serious: No
  Sender: FDA-Public Use
  Company Number: JP-PFIZER INC-2011230395

PATIENT
  Age: 10 Year
  Sex: Male

DRUGS (2)
  1. SOMATROPIN [Suspect]
     Indication: BODY HEIGHT BELOW NORMAL
     Dosage: 6.0 MG, SIX TIMES/WEEK
     Dates: start: 20090313
  2. LEVOTHYROXINE SODIUM [Concomitant]
     Indication: CONGENITAL HYPOTHYROIDISM
     Dosage: UNK
     Route: 048

REACTIONS (1)
  - THYROIDITIS [None]
